FAERS Safety Report 10276176 (Version 2)
Quarter: 2014Q3

REPORT INFORMATION
  Report Type: Spontaneous
  Country: US (occurrence: None)
  Receive Date: 20140701
  Receipt Date: 20140721
  Transmission Date: 20150326
  Serious: Yes (Other)
  Sender: FDA-Public Use
  Company Number: 2014VER00018

PATIENT
  Age: 27 Year
  Sex: Female

DRUGS (2)
  1. MYORISAN [Suspect]
     Active Substance: ISOTRETINOIN
     Indication: ACNE CYSTIC
     Dosage: 40 MG, 1X/DAY, ORAL
     Route: 048
     Dates: start: 20140521, end: 20140529
  2. UNSPECIFIED ORAL CONTRACEPTIVES [Concomitant]
     Active Substance: UNSPECIFIED INGREDIENT

REACTIONS (11)
  - Decreased appetite [None]
  - Depressed mood [None]
  - Feelings of worthlessness [None]
  - Diarrhoea [None]
  - Aggression [None]
  - Somnolence [None]
  - Vomiting [None]
  - Headache [None]
  - Crying [None]
  - Mental disorder [None]
  - Hostility [None]

NARRATIVE: CASE EVENT DATE: 20140529
